APPROVED DRUG PRODUCT: LEVETIRACETAM
Active Ingredient: LEVETIRACETAM
Strength: 100MG/ML
Dosage Form/Route: SOLUTION;ORAL
Application: A079107 | Product #001
Applicant: TOLMAR INC
Approved: Jan 15, 2009 | RLD: No | RS: No | Type: DISCN